FAERS Safety Report 10913189 (Version 4)
Quarter: 2015Q3

REPORT INFORMATION
  Report Type: Report from Study
  Country: US (occurrence: US)
  Receive Date: 20150313
  Receipt Date: 20150805
  Transmission Date: 20151125
  Serious: Yes (Hospitalization, Other)
  Sender: FDA-Public Use
  Company Number: US-ACTELION-A-US2015-114237

PATIENT
  Age: 12 Year
  Sex: Male

DRUGS (1)
  1. ZAVESCA [Suspect]
     Active Substance: MIGLUSTAT
     Indication: LIPIDOSIS
     Dosage: 200 MG, UNK
     Route: 048
     Dates: start: 20140811

REACTIONS (7)
  - Hepatic neoplasm [Unknown]
  - Transfusion [Unknown]
  - Infection [Unknown]
  - Blood count abnormal [Unknown]
  - Platelet count decreased [Unknown]
  - Platelet transfusion [Unknown]
  - Chemotherapy [Unknown]

NARRATIVE: CASE EVENT DATE: 201502
